FAERS Safety Report 25041462 (Version 2)
Quarter: 2025Q1

REPORT INFORMATION
  Report Type: Report from Study
  Country: BR (occurrence: BR)
  Receive Date: 20250305
  Receipt Date: 20250310
  Transmission Date: 20250409
  Serious: Yes (Other)
  Sender: JOHNSON AND JOHNSON
  Company Number: BR-JNJFOC-20250300103

PATIENT
  Age: 70 Year
  Sex: Female
  Weight: 55 kg

DRUGS (1)
  1. SIMPONI [Suspect]
     Active Substance: GOLIMUMAB
     Indication: Rheumatoid arthritis
     Route: 058
     Dates: start: 20150407

REACTIONS (10)
  - Pneumonia [Unknown]
  - Colitis [Unknown]
  - Diarrhoea [Unknown]
  - COVID-19 [Unknown]
  - Pulmonary mass [Unknown]
  - Gastrointestinal infection [Unknown]
  - Foot deformity [Unknown]
  - Immune system disorder [Unknown]
  - Overweight [Unknown]
  - Influenza [Unknown]
